FAERS Safety Report 5933723-3 (Version None)
Quarter: 2008Q4

REPORT INFORMATION
  Report Type: 
  Country: None (occurrence: None)
  Receive Date: 20081029
  Receipt Date: 20081022
  Transmission Date: 20090506
  Serious: Yes (Life-Threatening, Hospitalization, Other)
  Sender: FDA-Public Use
  Company Number: JP-BRISTOL-MYERS SQUIBB COMPANY-14054753

PATIENT
  Sex: Male

DRUGS (1)
  1. KENACORT [Suspect]
     Indication: SEASONAL ALLERGY
     Dosage: FIRST DOSE: 28-MAR-2005 ; SECOND DOSE:09-APR-2005
     Route: 030
     Dates: start: 20050409, end: 20050409

REACTIONS (8)
  - ANAPHYLACTIC SHOCK [None]
  - ANXIETY DISORDER [None]
  - CEREBRAL INFARCTION [None]
  - CHEST PAIN [None]
  - CHORIORETINOPATHY [None]
  - EMOTIONAL DISTRESS [None]
  - MYOCARDIAL INFARCTION [None]
  - TINNITUS [None]
